FAERS Safety Report 6899416-3 (Version None)
Quarter: 2010Q3

REPORT INFORMATION
  Report Type: 
  Country: None (occurrence: None)
  Receive Date: 20100803
  Receipt Date: 20090604
  Transmission Date: 20110219
  Serious: No
  Sender: FDA-Public Use
  Company Number: US-PFIZER INC-2009182518

PATIENT
  Sex: Female
  Weight: 109 kg

DRUGS (6)
  1. NEURONTIN [Suspect]
     Indication: NEUROPATHY PERIPHERAL
     Dosage: UNK
     Route: 048
     Dates: start: 20090301
  2. METHADONE [Concomitant]
     Indication: MYASTHENIA GRAVIS
     Dosage: 60MG EVERY 3 HOURS AND 180MG AT NIGHT
  3. ADVAIR DISKUS 100/50 [Concomitant]
     Indication: ASTHMA
     Dosage: UNK
  4. SIMVASTATIN [Concomitant]
     Dosage: 40MG DAILY
  5. REGLAN [Concomitant]
     Dosage: 5 MG, 3X/DAY
  6. MOBIC [Concomitant]
     Indication: ARTHRITIS
     Dosage: UNK

REACTIONS (1)
  - SOMNOLENCE [None]
